FAERS Safety Report 24136252 (Version 1)
Quarter: 2024Q3

REPORT INFORMATION
  Report Type: Spontaneous
  Country: JP (occurrence: JP)
  Receive Date: 20240725
  Receipt Date: 20240725
  Transmission Date: 20241017
  Serious: Yes (Hospitalization)
  Sender: EISAI
  Company Number: JP-Eisai-202313035_LEN-HCC_P_1

PATIENT
  Age: 74 Year
  Sex: Male
  Weight: 54 kg

DRUGS (1)
  1. LENVIMA [Suspect]
     Active Substance: LENVATINIB
     Indication: Hepatocellular carcinoma
     Route: 048
     Dates: start: 20240112, end: 20240115

REACTIONS (4)
  - Hepatic function abnormal [Not Recovered/Not Resolved]
  - Renal impairment [Recovered/Resolved]
  - Pyrexia [Recovering/Resolving]
  - Inflammation [Not Recovered/Not Resolved]

NARRATIVE: CASE EVENT DATE: 20240114
